FAERS Safety Report 6136310-X (Version None)
Quarter: 2009Q1

REPORT INFORMATION
  Report Type: 
  Country: None (occurrence: None)
  Receive Date: 20090325
  Receipt Date: 20090317
  Transmission Date: 20090719
  Serious: Yes (Death)
  Sender: FDA-Public Use
  Company Number: 2009SP004262

PATIENT
  Age: 55 Year
  Sex: Male

DRUGS (1)
  1. TEMODAR [Suspect]
     Indication: GLIOBLASTOMA MULTIFORME
     Dosage: 330 MG; ; PO, 105 MG; ; PO
     Route: 048
     Dates: start: 20080601, end: 20080701

REACTIONS (1)
  - DISEASE PROGRESSION [None]
